FAERS Safety Report 21944660 (Version 1)
Quarter: 2023Q1

REPORT INFORMATION
  Report Type: Spontaneous
  Country: US (occurrence: None)
  Receive Date: 20230201
  Receipt Date: 20230201
  Transmission Date: 20230417
  Serious: Yes (Life-Threatening, Hospitalization)
  Sender: FDA-Public Use
  Company Number: None

PATIENT
  Age: 29 Year
  Sex: Female
  Weight: 63 kg

DRUGS (1)
  1. ANNOVERA [Suspect]
     Active Substance: ETHINYL ESTRADIOL\SEGESTERONE ACETATE
     Indication: Contraception
     Dosage: OTHER QUANTITY : 1 RING;?OTHER FREQUENCY : 22 IN AND 7 OUT;?
     Route: 067
     Dates: start: 20230131, end: 20230201

REACTIONS (7)
  - Dizziness [None]
  - Hypoaesthesia [None]
  - Nausea [None]
  - Muscle spasms [None]
  - Homicidal ideation [None]
  - Abdominal pain upper [None]
  - Euphoric mood [None]

NARRATIVE: CASE EVENT DATE: 20230201
